FAERS Safety Report 10109173 (Version 1)
Quarter: 2014Q2

REPORT INFORMATION
  Report Type: Spontaneous
  Country: US (occurrence: None)
  Receive Date: 20140424
  Receipt Date: 20140424
  Transmission Date: 20141212
  Serious: Yes (Disabling)
  Sender: FDA-Public Use
  Company Number: None

PATIENT
  Age: 84 Year
  Sex: Female
  Weight: 52.16 kg

DRUGS (1)
  1. DIOVAN [Suspect]
     Indication: HYPERTENSION
     Dosage: 320 MG ?ONE PILL?ONCE DAILY, AT BREAKFAST?BY MOUTH
     Route: 048
     Dates: end: 20130910

REACTIONS (3)
  - Dry mouth [None]
  - Speech disorder [None]
  - Muscle tightness [None]
